FAERS Safety Report 10072814 (Version 3)
Quarter: 2014Q2

REPORT INFORMATION
  Report Type: Spontaneous
  Country: JP (occurrence: JP)
  Receive Date: 20140411
  Receipt Date: 20140516
  Transmission Date: 20141212
  Serious: Yes (Life-Threatening, Hospitalization)
  Sender: FDA-Public Use
  Company Number: JP-B.I. PHARMACEUTICALS,INC./RIDGEFIELD-2014-BI-16765NB

PATIENT
  Age: 83 Year
  Sex: Male
  Weight: 50 kg

DRUGS (9)
  1. TRAZENTA [Suspect]
     Indication: DIABETES MELLITUS
     Dosage: 5 MG
     Route: 065
     Dates: start: 20130816, end: 20140404
  2. AIMIX [Suspect]
     Indication: HYPERTENSION
     Dosage: DAILY DOSE: 1DF
     Route: 065
  3. HERBESSER [Concomitant]
     Indication: HYPERTENSION
     Dosage: 200 MG
     Route: 065
  4. SIGMART [Concomitant]
     Indication: ANGINA PECTORIS
     Dosage: 10 MG
     Route: 065
  5. PARIET [Concomitant]
     Dosage: 10 MG
     Route: 065
  6. TALION OD [Concomitant]
     Dosage: 10 MG
     Route: 065
  7. ONEALFA [Concomitant]
     Indication: RENAL FAILURE
     Dosage: 0.5 MCG
     Route: 065
  8. PRECIPITATED CALCIUM CARBONATE [Concomitant]
     Indication: RENAL FAILURE
     Dosage: 1000 MG
     Route: 065
  9. FRANDOL S [Concomitant]
     Route: 065
     Dates: end: 20140320

REACTIONS (1)
  - Hypoglycaemia [Recovered/Resolved]
